FAERS Safety Report 24067193 (Version 3)
Quarter: 2025Q2

REPORT INFORMATION
  Report Type: Report from Study
  Country: US (occurrence: US)
  Receive Date: 20240709
  Receipt Date: 20250527
  Transmission Date: 20250717
  Serious: Yes (Hospitalization)
  Sender: ROCHE
  Company Number: US-ROCHE-3559915

PATIENT
  Age: 54 Year
  Sex: Male

DRUGS (4)
  1. HEMLIBRA [Suspect]
     Active Substance: EMICIZUMAB-KXWH
     Indication: Haemophilia
     Dosage: INJECT 127MG (0.85ML) SUBCUTANEOUSLY
     Route: 058
  2. HEMLIBRA [Suspect]
     Active Substance: EMICIZUMAB-KXWH
     Indication: Factor VIII deficiency
     Dosage: INJECT 162MG (1.4ML)
     Route: 058
  3. HEMLIBRA [Suspect]
     Active Substance: EMICIZUMAB-KXWH
     Dosage: INJECT 165MG (1.1ML) SUBCUTANEOUSLY EVERY WEEK ( 0.7ML FROM 105MG VIAL AND 0.4ML FROM 60MG VIAL).
     Route: 058
  4. HEMLIBRA [Suspect]
     Active Substance: EMICIZUMAB-KXWH
     Dosage: INJECT 165MG (1.1ML) SUBCUTANEOUSLY EVERY WEEK ( 0.7ML FROM 105MG VIAL AND 0.4ML FROM 60MG VIAL).
     Route: 058

REACTIONS (4)
  - Road traffic accident [Unknown]
  - Multiple fractures [Unknown]
  - Pain [Unknown]
  - Localised infection [Unknown]
